FAERS Safety Report 5685153-X (Version None)
Quarter: 2008Q1

REPORT INFORMATION
  Report Type: 
  Country: None (occurrence: None)
  Receive Date: 20080328
  Receipt Date: 20080318
  Transmission Date: 20080703
  Serious: Yes (Disabling, Other)
  Sender: FDA-Public Use
  Company Number: US-PFIZER INC-2007029497

PATIENT
  Sex: Female

DRUGS (18)
  1. XANAX [Suspect]
  2. LIPITOR [Suspect]
  3. CHANTIX [Suspect]
     Indication: EX-SMOKER
  4. TRAZODONE HYDROCHLORIDE [Suspect]
  5. PRAZOSIN HCL [Suspect]
     Indication: NIGHTMARE
  6. PRAZOSIN HCL [Suspect]
     Indication: FLASHBACK
  7. LEVOTHYROXINE SODIUM [Concomitant]
  8. PAXIL [Concomitant]
     Dosage: DAILY DOSE:40MG-TEXT:Q HS
  9. CRESTOR [Concomitant]
  10. OXYCONTIN [Concomitant]
  11. SEROQUEL [Concomitant]
  12. ZYPREXA [Concomitant]
  13. VICODIN [Concomitant]
  14. SOMA [Concomitant]
  15. HUMATIN [Concomitant]
  16. IMITREX [Concomitant]
  17. ZANTAC [Concomitant]
  18. LOVENOX [Concomitant]

REACTIONS (14)
  - ANOREXIA [None]
  - ANXIETY DISORDER [None]
  - BACK PAIN [None]
  - DEEP VEIN THROMBOSIS [None]
  - DISSOCIATIVE DISORDER [None]
  - DISTURBANCE IN ATTENTION [None]
  - FRACTURE [None]
  - PAIN [None]
  - PANIC ATTACK [None]
  - ROAD TRAFFIC ACCIDENT [None]
  - SELF-INJURIOUS IDEATION [None]
  - SOCIAL PHOBIA [None]
  - SYSTEMIC LUPUS ERYTHEMATOSUS [None]
  - WEIGHT DECREASED [None]
